FAERS Safety Report 8451875-0 (Version None)
Quarter: 2012Q2

REPORT INFORMATION
  Report Type: 
  Country: None (occurrence: None)
  Receive Date: 20120620
  Receipt Date: 20120322
  Transmission Date: 20120825
  Serious: No
  Sender: FDA-Public Use
  Company Number: US-VERTEX PHARMACEUTICALS INC.-AE-2012-004166

PATIENT
  Sex: Female
  Weight: 97.61 kg

DRUGS (8)
  1. ZYRTEC [Concomitant]
  2. BENADRYL [Concomitant]
  3. INCIVEK [Suspect]
     Indication: HEPATITIS C
     Route: 048
     Dates: start: 20120203
  4. PEGASYS [Concomitant]
     Indication: HEPATITIS C
     Route: 058
  5. SKELAXIN [Concomitant]
  6. BENAZEPRIL HYDROCHLORIDE [Concomitant]
  7. HYDROCHLOROTHIAZIDE [Concomitant]
  8. RIBASPHERE [Concomitant]
     Indication: HEPATITIS C

REACTIONS (3)
  - ANAEMIA [None]
  - RASH PAPULAR [None]
  - PRURITUS [None]
